FAERS Safety Report 6411422-1 (Version None)
Quarter: 2009Q4

REPORT INFORMATION
  Report Type: 
  Country: None (occurrence: None)
  Receive Date: 20091023
  Receipt Date: 20091016
  Transmission Date: 20100525
  Serious: Yes (Hospitalization, Other)
  Sender: FDA-Public Use
  Company Number: US-ELI_LILLY_AND_COMPANY-US200610001338

PATIENT
  Sex: Female
  Weight: 56.87 kg

DRUGS (34)
  1. BYETTA [Suspect]
     Indication: DIABETES MELLITUS
     Dosage: 5 UG, 2/D
     Route: 058
     Dates: start: 20050815, end: 20050918
  2. BYETTA [Interacting]
     Dosage: 10 UG, 2/D
     Route: 058
     Dates: start: 20050919, end: 20060809
  3. PROGRAF [Interacting]
     Indication: RENAL TRANSPLANT
     Dosage: 2 MG, 2/D
  4. PROGRAF [Interacting]
     Dosage: 4 MG, 2/D
     Dates: end: 20060516
  5. PROGRAF [Interacting]
     Dosage: 6 MG, 2/D
     Dates: start: 20060516, end: 20060101
  6. PROGRAF [Interacting]
     Dosage: 8 MG, 2/D
     Route: 048
     Dates: start: 20060101, end: 20060801
  7. PROGRAF [Interacting]
     Dosage: 2 MG, 2/D
     Route: 048
     Dates: start: 20060101
  8. LANTUS [Concomitant]
     Dosage: UNK, UNK
     Dates: end: 20050814
  9. LANTUS [Concomitant]
     Dosage: 30 U, EACH EVENING
     Dates: start: 20050815, end: 20060918
  10. LANTUS [Concomitant]
     Dosage: UNK, UNKNOWN
     Route: 058
     Dates: start: 20060918
  11. MIRTAZAPINE [Concomitant]
  12. EFFEXOR [Concomitant]
     Indication: STRESS
     Dates: start: 20060401
  13. NORVASC [Concomitant]
     Indication: BLOOD PRESSURE INCREASED
  14. LABETALOL HCL [Concomitant]
  15. CLONIDINE [Concomitant]
  16. HUMALOG                                 /GFR/ [Concomitant]
     Dates: start: 20050815
  17. LIPITOR [Concomitant]
     Indication: DYSLIPIDAEMIA
     Dosage: 10 MG, DAILY (1/D)
  18. EPOGEN [Concomitant]
     Indication: ANAEMIA
     Dosage: UNK, UNKNOWN
     Route: 065
  19. LEVAQUIN [Concomitant]
  20. AUGMENTIN XR [Concomitant]
  21. CIPRO HC [Concomitant]
  22. HYDROCODONE BITARTRATE AND ACETAMINOPHEN [Concomitant]
  23. AMBIEN [Concomitant]
  24. RENAGEL [Concomitant]
  25. AMOXICILLIN [Concomitant]
  26. CHLORPHENIRAMINE MALEATE [Concomitant]
  27. PHENYLEPHRINE [Concomitant]
  28. PYRILAMINE [Concomitant]
  29. HYDROCORTISONE [Concomitant]
  30. PRAMOXINE HYDROCHLORIDE [Concomitant]
  31. CHLOROXYLENOL [Concomitant]
  32. MULTIVITAMINS PLUS IRON [Concomitant]
  33. ANTIPYRINE [Concomitant]
  34. BENZOCAINE [Concomitant]

REACTIONS (9)
  - ANAEMIA [None]
  - DRUG INTERACTION [None]
  - DRUG LEVEL DECREASED [None]
  - HAEMORRHOIDAL HAEMORRHAGE [None]
  - KIDNEY FIBROSIS [None]
  - KIDNEY TRANSPLANT REJECTION [None]
  - STRESS [None]
  - VOMITING [None]
  - WEIGHT DECREASED [None]
